FAERS Safety Report 24345430 (Version 1)
Quarter: 2024Q3

REPORT INFORMATION
  Report Type: Report from Study
  Country: CA (occurrence: CA)
  Receive Date: 20240920
  Receipt Date: 20240920
  Transmission Date: 20241017
  Serious: Yes (Other)
  Sender: ABBVIE
  Company Number: CA-ABBVIE-5929196

PATIENT
  Age: 46 Year
  Sex: Male

DRUGS (1)
  1. HUMIRA [Suspect]
     Active Substance: ADALIMUMAB
     Indication: Crohn^s disease
     Route: 058
     Dates: start: 20191112

REACTIONS (6)
  - Ileal stenosis [Unknown]
  - Abdominal discomfort [Unknown]
  - Abdominal abscess [Unknown]
  - Intestinal perforation [Unknown]
  - Small intestinal resection [Unknown]
  - Ileostomy [Unknown]
